FAERS Safety Report 6838843-7 (Version None)
Quarter: 2010Q3

REPORT INFORMATION
  Report Type: 
  Country: None (occurrence: None)
  Receive Date: 20100713
  Receipt Date: 20070810
  Transmission Date: 20110219
  Serious: No
  Sender: FDA-Public Use
  Company Number: US-PFIZER INC-2007045667

PATIENT
  Sex: Female
  Weight: 59 kg

DRUGS (3)
  1. CHANTIX [Suspect]
     Indication: SMOKING CESSATION THERAPY
     Dates: start: 20070501
  2. ANTIHYPERTENSIVES [Concomitant]
     Indication: HYPERTENSION
  3. VARIOUS ALIMENTARY TRACT + METABOLISM PRODUCT [Concomitant]
     Indication: ABDOMINAL PAIN UPPER

REACTIONS (1)
  - ARTHRALGIA [None]
